FAERS Safety Report 8466478-1 (Version None)
Quarter: 2012Q2

REPORT INFORMATION
  Report Type: 
  Country: None (occurrence: None)
  Receive Date: 20120626
  Receipt Date: 20120622
  Transmission Date: 20120825
  Serious: Yes (Hospitalization)
  Sender: FDA-Public Use
  Company Number: PHHO2012DE009355

PATIENT
  Age: 38 Year
  Sex: Female
  Weight: 67 kg

DRUGS (3)
  1. NO TREATMENT RECEIVED [Suspect]
  2. METHIMAZOLE [Concomitant]
     Indication: HYPERTHYROIDISM
     Dosage: 10 MG, QD
     Route: 065
     Dates: start: 20111101
  3. PREDNISONE TAB [Suspect]
     Indication: ENDOCRINE OPHTHALMOPATHY
     Dosage: 500 MG, UNK
     Route: 065
     Dates: start: 20120404

REACTIONS (2)
  - GASTRITIS [None]
  - CYSTITIS [None]
